FAERS Safety Report 5112990-2 (Version None)
Quarter: 2006Q3

REPORT INFORMATION
  Report Type: 
  Country: None (occurrence: None)
  Receive Date: 20060921
  Receipt Date: 20060921
  Transmission Date: 20061208
  Serious: No
  Sender: FDA-Public Use
  Company Number: None

PATIENT
  Sex: Male
  Weight: 184.8408 kg

DRUGS (11)
  1. MOMETASONE FUROATE [Suspect]
     Indication: NASAL CONGESTION
     Dosage: 50 MCG QD NASAL
     Route: 045
     Dates: start: 20060720, end: 20060824
  2. ATENOLOL [Concomitant]
  3. CHLORZOXAZONE [Concomitant]
  4. ENALAPRIL MALEATE [Concomitant]
  5. HYDROCHLOROTHIAZDE TAB [Concomitant]
  6. SYNTHROID [Concomitant]
  7. NIACIN-NIASPAN-KOS [Concomitant]
  8. NIFEDIPINE-EQV-CC [Concomitant]
  9. SALSALATE [Concomitant]
  10. SIMVASTATIN [Concomitant]
  11. COUMADIN [Concomitant]

REACTIONS (1)
  - DIZZINESS [None]
